FAERS Safety Report 4777453-2 (Version None)
Quarter: 2005Q3

REPORT INFORMATION
  Report Type: 
  Country: None (occurrence: None)
  Receive Date: 20050915
  Receipt Date: 20050830
  Transmission Date: 20060218
  Serious: Yes (Hospitalization)
  Sender: FDA-Public Use
  Company Number: 200508IM000468

PATIENT
  Age: 43 Year
  Sex: Male

DRUGS (2)
  1. INFERGEN [Suspect]
     Indication: HEPATITIS C
     Dosage: 15 UG, QD, SUBCUTANEOUS
     Route: 058
  2. RIBAVIRIN [Concomitant]

REACTIONS (3)
  - JAUNDICE [None]
  - PERITONITIS BACTERIAL [None]
  - PLATELET COUNT DECREASED [None]
